FAERS Safety Report 18935223 (Version 1)
Quarter: 2021Q1

REPORT INFORMATION
  Report Type: Spontaneous
  Country: US (occurrence: US)
  Receive Date: 20210224
  Receipt Date: 20210224
  Transmission Date: 20210420
  Serious: No
  Sender: FDA-Public Use
  Company Number: US-TEVA-2021-US-1874668

PATIENT
  Age: 65 Year
  Sex: Male

DRUGS (8)
  1. VALBENAZINE [Suspect]
     Active Substance: VALBENAZINE
     Indication: MEIGE^S SYNDROME
     Route: 065
  2. DEUTETRABENAZINE [Suspect]
     Active Substance: DEUTETRABENAZINE
     Indication: MEIGE^S SYNDROME
     Route: 065
  3. BACLOFEN. [Suspect]
     Active Substance: BACLOFEN
     Indication: MEIGE^S SYNDROME
     Route: 065
  4. TRIHEXYPHENIDYL [Suspect]
     Active Substance: TRIHEXYPHENIDYL
     Indication: MEIGE^S SYNDROME
     Route: 065
  5. TETRABENAZINE. [Suspect]
     Active Substance: TETRABENAZINE
     Indication: MEIGE^S SYNDROME
     Route: 065
  6. CLONAZEPAM. [Suspect]
     Active Substance: CLONAZEPAM
     Indication: MEIGE^S SYNDROME
     Route: 065
  7. BOTULINUM?TOXIN [Suspect]
     Active Substance: BOTULINUM TOXIN NOS
     Indication: MEIGE^S SYNDROME
     Route: 065
  8. ZOLPIDEM [Suspect]
     Active Substance: ZOLPIDEM TARTRATE
     Indication: MEIGE^S SYNDROME
     Route: 065

REACTIONS (1)
  - Drug ineffective [Unknown]
